FAERS Safety Report 4873533-1 (Version None)
Quarter: 2006Q1

REPORT INFORMATION
  Report Type: 
  Country: None (occurrence: None)
  Receive Date: 20060105
  Receipt Date: 20051005
  Transmission Date: 20060701
  Serious: Yes (Death, Other)
  Sender: FDA-Public Use
  Company Number: US-MERCK-0510USA05211

PATIENT
  Age: 55 Year
  Sex: Female

DRUGS (1)
  1. VIOXX [Suspect]
     Indication: ARTHRITIS
     Route: 048
     Dates: start: 20010601, end: 20040402

REACTIONS (4)
  - CARDIOVASCULAR DISORDER [None]
  - DEATH [None]
  - POST PROCEDURAL COMPLICATION [None]
  - RENAL FAILURE [None]
